FAERS Safety Report 5816655-0 (Version None)
Quarter: 2008Q3

REPORT INFORMATION
  Report Type: 
  Country: None (occurrence: None)
  Receive Date: 20080721
  Receipt Date: 20080709
  Transmission Date: 20090109
  Serious: Yes (Life-Threatening)
  Sender: FDA-Public Use
  Company Number: CH-PFIZER INC-2008056434

PATIENT
  Age: 67 Year
  Sex: Male

DRUGS (8)
  1. ZOLOFT [Suspect]
     Indication: DEPRESSION
     Route: 048
     Dates: start: 20080329, end: 20080423
  2. NEXIUM [Concomitant]
     Route: 048
  3. DAFALGAN [Concomitant]
     Route: 048
  4. TENORMIN [Concomitant]
     Route: 048
  5. SORTIS [Concomitant]
     Route: 048
  6. ENATEC [Concomitant]
     Route: 048
  7. ASPIRIN [Concomitant]
     Route: 048
  8. ALL OTHER THERAPEUTIC PRODUCTS [Concomitant]
     Route: 048

REACTIONS (3)
  - HYPERTHERMIA [None]
  - RHABDOMYOLYSIS [None]
  - SEROTONIN SYNDROME [None]
